FAERS Safety Report 19591717 (Version 2)
Quarter: 2021Q3

REPORT INFORMATION
  Report Type: Report from Study
  Country: US (occurrence: US)
  Receive Date: 20210721
  Receipt Date: 20210811
  Transmission Date: 20211014
  Serious: Yes (Hospitalization, Other)
  Sender: FDA-Public Use
  Company Number: US-GILEAD-2021-0541121

PATIENT
  Sex: Female

DRUGS (3)
  1. AMBRISENTAN [Suspect]
     Active Substance: AMBRISENTAN
     Indication: PULMONARY ARTERIAL HYPERTENSION
     Dosage: 5 MG, QD
     Route: 065
     Dates: start: 20210426
  2. TADALAFIL. [Concomitant]
     Active Substance: TADALAFIL
  3. LASIX [Concomitant]
     Active Substance: FUROSEMIDE

REACTIONS (8)
  - Decreased appetite [Unknown]
  - Peripheral swelling [Unknown]
  - Pharyngitis [Unknown]
  - Intentional product use issue [Not Recovered/Not Resolved]
  - Fatigue [Unknown]
  - Oedema peripheral [Not Recovered/Not Resolved]
  - Pneumonia [Unknown]
  - Weight increased [Unknown]
